FAERS Safety Report 20405803 (Version 2)
Quarter: 2022Q1

REPORT INFORMATION
  Report Type: Report from Study
  Country: CO (occurrence: CO)
  Receive Date: 20220131
  Receipt Date: 20220326
  Transmission Date: 20220424
  Serious: Yes (Hospitalization, Other)
  Sender: FDA-Public Use
  Company Number: CO-NOVARTISPH-NVSC2021CO254358

PATIENT
  Age: 65 Year
  Sex: Male
  Weight: 71 kg

DRUGS (6)
  1. ELTROMBOPAG OLAMINE [Suspect]
     Active Substance: ELTROMBOPAG OLAMINE
     Indication: Aplastic anaemia
     Dosage: 150 MG, QD (24 HOURS)
     Route: 048
     Dates: start: 202107
  2. ELTROMBOPAG OLAMINE [Suspect]
     Active Substance: ELTROMBOPAG OLAMINE
     Dosage: 150 MG, QD (24 HOURS)
     Route: 048
  3. ACYCLOVIR [Concomitant]
     Active Substance: ACYCLOVIR
     Indication: Aplastic anaemia
     Dosage: 200 MG, QD
     Route: 048
     Dates: start: 202107
  4. PREDNISOLONE [Concomitant]
     Active Substance: PREDNISOLONE
     Indication: Aplastic anaemia
     Dosage: 5 MG, QD
     Route: 048
     Dates: start: 202107
  5. OMEPRAZOLE [Concomitant]
     Active Substance: OMEPRAZOLE
     Indication: Gastritis prophylaxis
     Dosage: 20 MG, QD
     Route: 048
     Dates: start: 202107
  6. HALCION [Concomitant]
     Active Substance: TRIAZOLAM
     Indication: Product used for unknown indication
     Dosage: 600 MG, QD
     Route: 048
     Dates: start: 202107

REACTIONS (11)
  - Platelet count decreased [Recovered/Resolved]
  - Petechiae [Recovered/Resolved]
  - Haematemesis [Recovered/Resolved]
  - Thrombosis [Recovered/Resolved]
  - Choking [Unknown]
  - Malaise [Unknown]
  - Product dose omission issue [Unknown]
  - Fatigue [Unknown]
  - Chest discomfort [Unknown]
  - Pain in extremity [Unknown]
  - Product supply issue [Unknown]

NARRATIVE: CASE EVENT DATE: 20211001
